FAERS Safety Report 7332726-4 (Version None)
Quarter: 2011Q1

REPORT INFORMATION
  Report Type: 
  Country: None (occurrence: None)
  Receive Date: 20110222
  Receipt Date: 20110209
  Transmission Date: 20110831
  Serious: Yes (Hospitalization)
  Sender: FDA-Public Use
  Company Number: 2011MA001240

PATIENT
  Age: 31 Month
  Sex: Male

DRUGS (3)
  1. ISONIAZID [Suspect]
     Dosage: 200 MG;QD
  2. PYRAZINAMIDE [Concomitant]
  3. RIFAMPIN [Suspect]
     Indication: PULMONARY TUBERCULOSIS
     Dosage: 480 MG;QD

REACTIONS (11)
  - HEPATIC ENCEPHALOPATHY [None]
  - RENAL IMPAIRMENT [None]
  - LIVER TRANSPLANT [None]
  - PROTHROMBIN TIME PROLONGED [None]
  - HEPATIC NECROSIS [None]
  - ANTI-HBS ANTIBODY POSITIVE [None]
  - LIVER TRANSPLANT REJECTION [None]
  - HEPATOTOXICITY [None]
  - ANTI-HBC IGG ANTIBODY POSITIVE [None]
  - DRUG RESISTANCE [None]
  - ACUTE HEPATIC FAILURE [None]
